FAERS Safety Report 10732747 (Version 1)
Quarter: 2015Q1

REPORT INFORMATION
  Report Type: Spontaneous
  Country: US (occurrence: US)
  Receive Date: 20150123
  Receipt Date: 20150123
  Transmission Date: 20150721
  Serious: Yes (Hospitalization)
  Sender: FDA-Public Use
  Company Number: US-PFIZER INC-2015025589

PATIENT
  Age: 32 Year
  Sex: Female
  Weight: 111 kg

DRUGS (2)
  1. TIGECYCLINE [Suspect]
     Active Substance: TIGECYCLINE
     Indication: OSTEOMYELITIS
  2. TIGECYCLINE [Suspect]
     Active Substance: TIGECYCLINE
     Indication: CELLULITIS STAPHYLOCOCCAL
     Dosage: UNK

REACTIONS (4)
  - Type I hypersensitivity [Unknown]
  - Rash [Unknown]
  - Cough [Unknown]
  - Paraesthesia mucosal [Unknown]
